FAERS Safety Report 7395433-8 (Version None)
Quarter: 2011Q1

REPORT INFORMATION
  Report Type: 
  Country: None (occurrence: None)
  Receive Date: 20110331
  Receipt Date: 20110331
  Transmission Date: 20110831
  Serious: Yes (Other)
  Sender: FDA-Public Use
  Company Number: None

PATIENT
  Age: 26 Year
  Sex: Female
  Weight: 96.6162 kg

DRUGS (1)
  1. PHENTERMINE [Suspect]
     Indication: OBESITY
     Dosage: 1 DAILY PO
     Route: 048

REACTIONS (3)
  - CONSTIPATION [None]
  - ANXIETY [None]
  - ANAL FISSURE [None]
